FAERS Safety Report 7277659-7 (Version None)
Quarter: 2011Q1

REPORT INFORMATION
  Report Type: 
  Country: None (occurrence: None)
  Receive Date: 20110202
  Receipt Date: 20110202
  Transmission Date: 20110831
  Serious: Yes (Hospitalization)
  Sender: FDA-Public Use
  Company Number: None

PATIENT
  Age: 61 Year
  Sex: Male
  Weight: 73.0291 kg

DRUGS (1)
  1. AVELOX [Suspect]
     Dosage: 400 MG ONCE A DAY PO
     Route: 048

REACTIONS (7)
  - URTICARIA [None]
  - RENAL FAILURE ACUTE [None]
  - PRURITUS [None]
  - METABOLIC ACIDOSIS [None]
  - HYPOTENSION [None]
  - RESPIRATORY DISTRESS [None]
  - RESPIRATORY ACIDOSIS [None]
